FAERS Safety Report 25137364 (Version 1)
Quarter: 2025Q1

REPORT INFORMATION
  Report Type: Spontaneous
  Country: AU (occurrence: AU)
  Receive Date: 20250329
  Receipt Date: 20250329
  Transmission Date: 20250409
  Serious: Yes (Other)
  Sender: ACCORD
  Company Number: None

PATIENT
  Sex: Male

DRUGS (2)
  1. TACROLIMUS [Suspect]
     Active Substance: TACROLIMUS
     Indication: Product used for unknown indication
  2. PREDNISOLONE [Suspect]
     Active Substance: PREDNISOLONE
     Indication: Product used for unknown indication

REACTIONS (6)
  - Pneumonia fungal [Unknown]
  - Bronchopulmonary aspergillosis [Unknown]
  - Pneumonia pseudomonal [Unknown]
  - Pseudomonas infection [Unknown]
  - Respiratory tract infection [Unknown]
  - Scedosporium infection [Unknown]
